FAERS Safety Report 9667929 (Version 3)
Quarter: 2014Q4

REPORT INFORMATION
  Report Type: Spontaneous
  Country: US (occurrence: None)
  Receive Date: 20131101
  Receipt Date: 20141117
  Transmission Date: 20150529
  Serious: Yes (Hospitalization)
  Sender: FDA-Public Use
  Company Number: 2013-US-002384

PATIENT
  Age: 54 Year
  Sex: Female

DRUGS (1)
  1. XYREM [Suspect]
     Active Substance: SODIUM OXYBATE
     Indication: FIBROMYALGIA
     Route: 048
     Dates: start: 200509, end: 200510

REACTIONS (2)
  - Off label use [None]
  - Hospitalisation [None]

NARRATIVE: CASE EVENT DATE: 2013
